FAERS Safety Report 6460205-5 (Version None)
Quarter: 2009Q4

REPORT INFORMATION
  Report Type: 
  Country: None (occurrence: None)
  Receive Date: 20091129
  Receipt Date: 20091116
  Transmission Date: 20100525
  Serious: Yes (Other)
  Sender: FDA-Public Use
  Company Number: US-TYCO HEALTHCARE/MALLINCKRODT-T200902209

PATIENT
  Age: 45 Year
  Sex: Male

DRUGS (3)
  1. TECHNESCAN [Suspect]
     Indication: BONE SCAN
     Dosage: UNK
     Route: 042
  2. ULTRA-TECHNEKOW [Suspect]
     Indication: BONE SCAN
     Dosage: UNK
     Route: 042
  3. AMIODARONE HCL [Suspect]
     Route: 042

REACTIONS (1)
  - PHLEBITIS [None]
